FAERS Safety Report 9654079 (Version 1)
Quarter: 2013Q4

REPORT INFORMATION
  Report Type: Spontaneous
  Country: US (occurrence: US)
  Receive Date: 20131029
  Receipt Date: 20131029
  Transmission Date: 20140711
  Serious: Yes (Other)
  Sender: FDA-Public Use
  Company Number: US-ELI_LILLY_AND_COMPANY-US201310005554

PATIENT
  Sex: Male

DRUGS (4)
  1. STRATTERA [Suspect]
     Indication: NARCOLEPSY
     Dosage: 60 MG, BID
     Route: 065
     Dates: start: 2011
  2. AZOR /06230801/ [Interacting]
     Indication: HYPERTENSION
     Dosage: UNK
     Route: 065
  3. FLEXERIL [Interacting]
     Indication: PRODUCT USED FOR UNKNOWN INDICATION
     Dosage: UNK
     Route: 065
  4. ADDERALL [Interacting]
     Indication: PRODUCT USED FOR UNKNOWN INDICATION
     Route: 065

REACTIONS (9)
  - Road traffic accident [Unknown]
  - Injury [Unknown]
  - Fatigue [Unknown]
  - Off label use [Not Recovered/Not Resolved]
  - Prescribed overdose [Not Recovered/Not Resolved]
  - Insomnia [Unknown]
  - Amphetamines positive [Unknown]
  - Drug interaction [Unknown]
  - Anger [Unknown]
